FAERS Safety Report 8554182 (Version 6)
Quarter: 2013Q1

REPORT INFORMATION
  Report Type: Spontaneous
  Country: US (occurrence: US)
  Receive Date: 20120509
  Receipt Date: 20130220
  Transmission Date: 20140127
  Serious: Yes (Hospitalization, Other)
  Sender: FDA-Public Use
  Company Number: US-GLAXOSMITHKLINE-A0943754A

PATIENT
  Age: 59 Year
  Sex: Female
  Weight: 95 kg

DRUGS (15)
  1. FLOLAN [Suspect]
     Indication: PULMONARY ARTERIAL HYPERTENSION
     Dosage: 3.3NGKM SEE DOSAGE TEXT
     Route: 042
     Dates: start: 20100514
  2. LASIX [Concomitant]
  3. LIPITOR [Concomitant]
  4. LANTUS [Concomitant]
  5. METFORMIN HCL [Concomitant]
  6. NEXIUM [Concomitant]
  7. VITAMIN B COMPLEX [Concomitant]
  8. PLAVIX [Concomitant]
  9. ENALAPRIL [Concomitant]
  10. ASPIRIN EC [Concomitant]
  11. TRACLEER [Concomitant]
  12. VITAMIN D [Concomitant]
  13. SPIRONOLACTONE [Concomitant]
  14. LEUKINE [Concomitant]
  15. ZOLOFT [Concomitant]

REACTIONS (5)
  - Eye haemorrhage [Recovered/Resolved]
  - Lung disorder [Recovered/Resolved]
  - Nausea [Recovered/Resolved]
  - Dyspnoea [Unknown]
  - Prophylaxis [Unknown]
